FAERS Safety Report 8443627 (Version 3)
Quarter: 2012Q4

REPORT INFORMATION
  Report Type: 
  Country: US (occurrence: US)
  Receive Date: 20120306
  Receipt Date: 20120926
  Transmission Date: 20130627
  Serious: Yes (Other)
  Sender: FDA-Public Use
  Company Number: US-ROCHE-1012066

PATIENT
  Age: 14 Year
  Sex: Male
  Weight: 83.99 kg

DRUGS (2)
  1. ACCUTANE [Suspect]
     Indication: ACNE
     Route: 048
     Dates: start: 20030109, end: 200308
  2. PRILOSEC [Concomitant]

REACTIONS (15)
  - Inflammatory bowel disease [Unknown]
  - Colitis ulcerative [Unknown]
  - Stress [Unknown]
  - Irritable bowel syndrome [Unknown]
  - Lip dry [Unknown]
  - Dry skin [Unknown]
  - Acne [Unknown]
  - Sleep disorder [Unknown]
  - Chapped lips [Unknown]
  - Epistaxis [Recovered/Resolved]
  - Blood triglycerides increased [Unknown]
  - Back pain [Recovered/Resolved]
  - Fatigue [Recovered/Resolved]
  - Abdominal discomfort [Recovered/Resolved]
  - Eye irritation [Recovered/Resolved]
